FAERS Safety Report 5593469-0 (Version None)
Quarter: 2008Q1

REPORT INFORMATION
  Report Type: 
  Country: None (occurrence: None)
  Receive Date: 20080116
  Receipt Date: 20080110
  Transmission Date: 20080703
  Serious: Yes (Other)
  Sender: FDA-Public Use
  Company Number: DE-TEVA-166202ISR

PATIENT

DRUGS (3)
  1. FLUOROURACIL [Suspect]
  2. FOLINIC ACID [Suspect]
  3. OXALIPLATIN [Concomitant]

REACTIONS (3)
  - DIARRHOEA [None]
  - MUCOSAL INFLAMMATION [None]
  - POLYNEUROPATHY [None]
